FAERS Safety Report 8275826-7 (Version None)
Quarter: 2012Q2

REPORT INFORMATION
  Report Type: 
  Country: None (occurrence: None)
  Receive Date: 20120410
  Receipt Date: 20120410
  Transmission Date: 20120825
  Serious: Yes (Hospitalization)
  Sender: FDA-Public Use
  Company Number: None

PATIENT
  Age: 65 Year
  Sex: Male
  Weight: 69.5 kg

DRUGS (3)
  1. WARFARIN SODIUM [Suspect]
     Indication: ATRIAL FIBRILLATION
     Dosage: 42.5 MG QWEEK PO
     Route: 048
  2. SULFAMETHOXAZOLE AND TRIMETHOPRIM [Suspect]
     Indication: INCISIONAL DRAINAGE
     Dosage: 2 TAB BID PO
     Route: 048
     Dates: start: 20120217, end: 20120224
  3. SULFAMETHOXAZOLE AND TRIMETHOPRIM [Suspect]
     Indication: SUBCUTANEOUS ABSCESS
     Dosage: 2 TAB BID PO
     Route: 048
     Dates: start: 20120217, end: 20120224

REACTIONS (7)
  - CONTUSION [None]
  - FAECES DISCOLOURED [None]
  - HAEMORRHAGE [None]
  - PAIN [None]
  - INTERNATIONAL NORMALISED RATIO INCREASED [None]
  - DIARRHOEA [None]
  - EPISTAXIS [None]
